FAERS Safety Report 25167543 (Version 1)
Quarter: 2025Q2

REPORT INFORMATION
  Report Type: Spontaneous
  Country: US (occurrence: US)
  Receive Date: 20250407
  Receipt Date: 20250407
  Transmission Date: 20250716
  Serious: Yes (Hospitalization, Other)
  Sender: APOTEX
  Company Number: US-APOTEX-2025AP004268

PATIENT
  Age: 11 Year
  Sex: Female

DRUGS (2)
  1. LACOSAMIDE [Suspect]
     Active Substance: LACOSAMIDE
     Indication: Product used for unknown indication
     Route: 048
  2. GABAPENTIN [Suspect]
     Active Substance: GABAPENTIN
     Indication: Product used for unknown indication
     Route: 048

REACTIONS (8)
  - Electroencephalogram abnormal [Recovering/Resolving]
  - Seizure like phenomena [Recovering/Resolving]
  - Cardiac arrest [Recovering/Resolving]
  - Ventricular arrhythmia [Recovering/Resolving]
  - Intentional product use issue [Unknown]
  - Mental status changes [Recovering/Resolving]
  - Myoclonic epilepsy [Recovering/Resolving]
  - Status epilepticus [Recovering/Resolving]
